FAERS Safety Report 14444594 (Version 1)
Quarter: 2018Q1

REPORT INFORMATION
  Report Type: Spontaneous
  Country: US (occurrence: US)
  Receive Date: 20180126
  Receipt Date: 20180126
  Transmission Date: 20180509
  Serious: No
  Sender: FDA-Public Use
  Company Number: US-DRREDDYS-USA/USA/17/0093356

PATIENT
  Age: 65 Year
  Sex: Female

DRUGS (1)
  1. RANITIDINE CAPSULES 150 MG [Suspect]
     Active Substance: RANITIDINE
     Indication: PRODUCT USED FOR UNKNOWN INDICATION
     Route: 048

REACTIONS (5)
  - Abdominal discomfort [Recovering/Resolving]
  - Malaise [Recovering/Resolving]
  - Diarrhoea [Recovering/Resolving]
  - Abdominal pain upper [Unknown]
  - Product odour abnormal [Unknown]
